FAERS Safety Report 5054142-0 (Version None)
Quarter: 2006Q3

REPORT INFORMATION
  Report Type: 
  Country: None (occurrence: None)
  Receive Date: 20060718
  Receipt Date: 20060710
  Transmission Date: 20061208
  Serious: Yes (Hospitalization)
  Sender: FDA-Public Use
  Company Number: PHBS2006IT10372

PATIENT
  Age: 72 Year
  Sex: Male

DRUGS (3)
  1. MELPHALAN [Concomitant]
     Route: 065
  2. PREDNISONE [Concomitant]
     Route: 065
  3. ZOMETA [Suspect]
     Indication: MULTIPLE MYELOMA
     Dosage: 4 MG, QMO
     Route: 042
     Dates: start: 20040605, end: 20060605

REACTIONS (1)
  - OSTEOMYELITIS [None]
